FAERS Safety Report 4569460-X (Version None)
Quarter: 2005Q1

REPORT INFORMATION
  Report Type: 
  Country: None (occurrence: None)
  Receive Date: 20050201
  Receipt Date: 20050120
  Transmission Date: 20050727
  Serious: Yes (Hospitalization, Other)
  Sender: FDA-Public Use
  Company Number: 204132

PATIENT
  Age: 44 Year
  Sex: Female

DRUGS (4)
  1. AVONEX [Suspect]
     Indication: MULTIPLE SCLEROSIS
     Dosage: UG; QW; IM
     Route: 030
     Dates: start: 19980901, end: 20030801
  2. AVONEX [Suspect]
     Indication: MULTIPLE SCLEROSIS
     Dosage: UG; QW; IM
     Route: 030
     Dates: start: 20040101
  3. AVONEX [Suspect]
     Indication: MULTIPLE SCLEROSIS
     Dosage: 30 UG; QW; IM
     Route: 030
     Dates: start: 20030801, end: 20040101
  4. AVONEX [Suspect]
     Indication: MULTIPLE SCLEROSIS
     Dosage: 30 UG; QW; IM
     Route: 030
     Dates: start: 20040101

REACTIONS (4)
  - ANGIONEUROTIC OEDEMA [None]
  - AUTOIMMUNE THYROIDITIS [None]
  - MYOCARDIAL INFARCTION [None]
  - URTICARIA [None]
